FAERS Safety Report 10621262 (Version 2)
Quarter: 2015Q2

REPORT INFORMATION
  Report Type: Spontaneous
  Country: US (occurrence: US)
  Receive Date: 20141203
  Receipt Date: 20150413
  Transmission Date: 20150821
  Serious: Yes (Other)
  Sender: FDA-Public Use
  Company Number: US-AMGEN-USASP2014092869

PATIENT
  Age: 66 Year
  Sex: Male
  Weight: 75 kg

DRUGS (3)
  1. ABIRATERONE [Concomitant]
     Active Substance: ABIRATERONE
     Indication: PROSTATE CANCER METASTATIC
     Dosage: UNK
     Dates: start: 201303, end: 20140930
  2. XGEVA [Suspect]
     Active Substance: DENOSUMAB
     Indication: PRODUCT USED FOR UNKNOWN INDICATION
     Dosage: UNK
     Route: 065
     Dates: start: 201304
  3. XTANDI [Suspect]
     Active Substance: ENZALUTAMIDE
     Indication: PROSTATE CANCER METASTATIC
     Dosage: 80 MG, QD
     Route: 048
     Dates: start: 20141016

REACTIONS (16)
  - Metastases to bone [Unknown]
  - Bone loss [Unknown]
  - Tooth infection [Not Recovered/Not Resolved]
  - Osteonecrosis of jaw [Unknown]
  - Chromaturia [Not Recovered/Not Resolved]
  - Pain in jaw [Recovered/Resolved]
  - Pain in extremity [Not Recovered/Not Resolved]
  - Drug prescribing error [Unknown]
  - Pruritus [Not Recovered/Not Resolved]
  - Tooth disorder [Not Recovered/Not Resolved]
  - Impaired healing [Not Recovered/Not Resolved]
  - Portal hypertension [Unknown]
  - Varices oesophageal [Unknown]
  - Hepatic cirrhosis [Unknown]
  - Back pain [Unknown]
  - Disease progression [Unknown]

NARRATIVE: CASE EVENT DATE: 2014
